FAERS Safety Report 25687344 (Version 1)
Quarter: 2025Q3

REPORT INFORMATION
  Report Type: Spontaneous
  Country: US (occurrence: US)
  Receive Date: 20250816
  Receipt Date: 20250816
  Transmission Date: 20251020
  Serious: Yes (Other)
  Sender: AMGEN
  Company Number: US-AMGEN-USASP2025159232

PATIENT
  Age: 67 Year
  Sex: Female
  Weight: 49.9 kg

DRUGS (11)
  1. PREDNISONE [Suspect]
     Active Substance: PREDNISONE
     Indication: Product used for unknown indication
     Dosage: 5 MILLIGRAM, QD
     Route: 048
  2. ENBREL [Suspect]
     Active Substance: ETANERCEPT
     Indication: Product used for unknown indication
     Route: 065
     Dates: end: 201706
  3. ELIQUIS [Concomitant]
     Active Substance: APIXABAN
     Dosage: 5 MILLIGRAM, BID
     Route: 048
  4. CARVEDILOL [Concomitant]
     Active Substance: CARVEDILOL
     Dosage: 12.5 MILLIGRAM, BID
     Route: 048
  5. FARXIGA [Concomitant]
     Active Substance: DAPAGLIFLOZIN PROPANEDIOL
     Dosage: 5 MILLIGRAM, QD
     Route: 048
  6. FOLIC ACID [Concomitant]
     Active Substance: FOLIC ACID
     Route: 048
  7. ENTRESTO [Concomitant]
     Active Substance: SACUBITRIL\VALSARTAN
     Dosage: 50 MILLIGRAM, BID (24-26 MG)
     Route: 048
  8. SPIRONOLACTONE [Concomitant]
     Active Substance: SPIRONOLACTONE
     Dosage: 12.5 MILLIGRAM, QD
     Route: 048
  9. CETIRIZINE [Concomitant]
     Active Substance: CETIRIZINE HYDROCHLORIDE
     Dosage: 10 MILLIGRAM, QD
     Route: 048
  10. LORATADINE [Concomitant]
     Active Substance: LORATADINE
     Indication: Hypersensitivity
     Dosage: 10 MILLIGRAM, QD
     Route: 048
  11. PANTOPRAZOLE [Concomitant]
     Active Substance: PANTOPRAZOLE
     Dosage: 20 MILLIGRAM, QD
     Route: 048

REACTIONS (27)
  - Cardiac failure [Unknown]
  - Rheumatoid arthritis [Unknown]
  - Hyperthyroidism [Unknown]
  - Dilated cardiomyopathy [Unknown]
  - Endometrial adenocarcinoma [Unknown]
  - Anxiety [Unknown]
  - Essential hypertension [Unknown]
  - Transfusion [Unknown]
  - Eczema [Unknown]
  - Ventricular hypertrophy [Unknown]
  - Inguinal hernia [Unknown]
  - Lymphoma [Unknown]
  - Atrial fibrillation [Unknown]
  - Supraventricular tachycardia [Unknown]
  - Procedural nausea [Unknown]
  - Procedural vomiting [Unknown]
  - Thyroid mass [Unknown]
  - Brain natriuretic peptide increased [Unknown]
  - Protein total abnormal [Unknown]
  - Blood glucose abnormal [Unknown]
  - White blood cell count increased [Unknown]
  - Escherichia test positive [Unknown]
  - Vitamin D deficiency [Unknown]
  - Osteoporosis [Unknown]
  - Hypertension [Unknown]
  - Depression [Unknown]
  - Thrombophlebitis [Unknown]

NARRATIVE: CASE EVENT DATE: 20120101
